FAERS Safety Report 5651496-9 (Version None)
Quarter: 2008Q1

REPORT INFORMATION
  Report Type: 
  Country: None (occurrence: None)
  Receive Date: 20080305
  Receipt Date: 20080215
  Transmission Date: 20080703
  Serious: No
  Sender: FDA-Public Use
  Company Number: JP-PFIZER INC-2007097800

PATIENT
  Age: 73 Year
  Sex: Male

DRUGS (10)
  1. LIPITOR [Suspect]
     Route: 048
  2. ASPIRIN [Concomitant]
     Route: 048
  3. LOSARTAN POTASSIUM [Concomitant]
     Route: 048
  4. ALLOPURINOL [Concomitant]
     Route: 048
  5. MEXITIL [Concomitant]
  6. TOCOPHEROL CONCENTRATE CAP [Concomitant]
     Route: 048
  7. COMELIAN [Concomitant]
     Route: 048
  8. TERNELIN [Concomitant]
     Route: 048
  9. CINAL [Concomitant]
     Route: 048
  10. DEPAS [Concomitant]
     Route: 048

REACTIONS (1)
  - NO ADVERSE EVENT [None]
